FAERS Safety Report 5595798-3 (Version None)
Quarter: 2008Q1

REPORT INFORMATION
  Report Type: 
  Country: None (occurrence: None)
  Receive Date: 20080118
  Receipt Date: 20080116
  Transmission Date: 20080703
  Serious: Yes (Other)
  Sender: FDA-Public Use
  Company Number: D0055817A

PATIENT
  Age: 24 Year
  Sex: Female

DRUGS (1)
  1. MALARONE [Suspect]
     Indication: MALARIA PROPHYLAXIS
     Route: 048
     Dates: start: 20071222, end: 20080110

REACTIONS (3)
  - AGGRESSION [None]
  - DEPRESSION [None]
  - LETHARGY [None]
